FAERS Safety Report 6783477-6 (Version None)
Quarter: 2010Q2

REPORT INFORMATION
  Report Type: 
  Country: None (occurrence: None)
  Receive Date: 20100520
  Receipt Date: 20090618
  Transmission Date: 20101027
  Serious: Yes (Other)
  Sender: FDA-Public Use
  Company Number: 2008057486

PATIENT
  Age: 58 Year
  Sex: Female
  Weight: 84 kg

DRUGS (7)
  1. PROVERA [Suspect]
     Indication: HORMONE REPLACEMENT THERAPY
     Dosage: 2.5 MG, ORAL
     Route: 048
     Dates: start: 19960101, end: 20020101
  2. PREMARIN [Suspect]
     Indication: HORMONE REPLACEMENT THERAPY
     Dosage: 0.3 MG
     Dates: start: 19960101, end: 20020101
  3. PREMPRO [Suspect]
     Indication: HORMONE REPLACEMENT THERAPY
     Dosage: 0.625 MG
     Dates: start: 19940101, end: 19960101
  4. DIOVAN [Concomitant]
  5. FELDENE [Concomitant]
  6. SYNTHROID [Concomitant]
  7. ENBREL [Concomitant]

REACTIONS (1)
  - BREAST CANCER FEMALE [None]
